FAERS Safety Report 8919129 (Version 9)
Quarter: 2019Q1

REPORT INFORMATION
  Report Type: Spontaneous
  Country: US (occurrence: US)
  Receive Date: 20121121
  Receipt Date: 20190115
  Transmission Date: 20190418
  Serious: Yes (Hospitalization, Disabling, Other)
  Sender: FDA-Public Use
  Company Number: US-009507513-1211USA008060

PATIENT
  Sex: Female
  Weight: 70.3 kg

DRUGS (11)
  1. FOSAMAX [Suspect]
     Active Substance: ALENDRONATE SODIUM
     Indication: OSTEOPOROSIS
  2. FORTEO [Suspect]
     Active Substance: TERIPARATIDE
     Indication: OSTEOPOROSIS
     Dosage: UNK
     Route: 065
     Dates: start: 2003, end: 2005
  3. FORTEO [Suspect]
     Active Substance: TERIPARATIDE
     Dosage: .08 ML, QD
     Route: 065
     Dates: start: 201208, end: 201310
  4. CALCIUM (UNSPECIFIED) (+) VITAMIN D (UNSPECIFIED) [Concomitant]
     Active Substance: CALCIUM CARBONATE\VITAMIN D
     Indication: PRODUCT USED FOR UNKNOWN INDICATION
     Route: 065
  5. RECLAST [Suspect]
     Active Substance: ZOLEDRONIC ACID
     Indication: OSTEOPOROSIS
     Dosage: 5 MG/100 ML, ONCE A YEAR
     Route: 051
     Dates: start: 20090831, end: 2010
  6. FOSAMAX [Suspect]
     Active Substance: ALENDRONATE SODIUM
     Indication: OSTEOPENIA
     Dosage: 70 MG, QW
     Route: 048
  7. PROLIA [Suspect]
     Active Substance: DENOSUMAB
     Indication: OSTEOPOROSIS
     Dosage: UNK
     Route: 065
     Dates: start: 20131227, end: 2015
  8. FOSAMAX [Suspect]
     Active Substance: ALENDRONATE SODIUM
     Indication: OSTEOPENIA
     Dosage: UNK
     Route: 048
     Dates: start: 1998
  9. FOSAMAX [Suspect]
     Active Substance: ALENDRONATE SODIUM
     Indication: OSTEOPOROSIS
  10. BONIVA [Suspect]
     Active Substance: IBANDRONATE SODIUM
     Indication: BONE LOSS
     Dosage: 150 MG, QM
     Route: 065
     Dates: start: 2007, end: 2008
  11. PHENERGAN [Suspect]
     Active Substance: PROMETHAZINE HYDROCHLORIDE

REACTIONS (71)
  - Osteoporosis [Not Recovered/Not Resolved]
  - Depression [Unknown]
  - Anxiety [Not Recovered/Not Resolved]
  - Hypertension [Unknown]
  - Hyperlipidaemia [Unknown]
  - Lumbar radiculopathy [Not Recovered/Not Resolved]
  - Knee arthroplasty [Recovered/Resolved]
  - Drug ineffective [Unknown]
  - Neuralgia [Unknown]
  - Fracture nonunion [Recovering/Resolving]
  - Osteoarthritis [Unknown]
  - Soft tissue mass [Unknown]
  - Pubis fracture [Unknown]
  - Femur fracture [Recovered/Resolved]
  - Low turnover osteopathy [Not Recovered/Not Resolved]
  - Back pain [Not Recovered/Not Resolved]
  - Polyp [Unknown]
  - Fall [Unknown]
  - Tibia fracture [Recovered/Resolved]
  - Fibula fracture [Recovered/Resolved]
  - Insomnia [Unknown]
  - Musculoskeletal pain [Not Recovered/Not Resolved]
  - Hypercalcaemia [Unknown]
  - Intervertebral disc disorder [Unknown]
  - Scoliosis [Unknown]
  - Nephrolithiasis [Unknown]
  - Impaired healing [Not Recovered/Not Resolved]
  - Bone disorder [Unknown]
  - Femur fracture [Recovered/Resolved with Sequelae]
  - Osteoarthritis [Not Recovered/Not Resolved]
  - Melanocytic naevus [Unknown]
  - Humerus fracture [Recovered/Resolved]
  - Hip fracture [Recovered/Resolved]
  - Fibromyalgia [Unknown]
  - Osteoporosis [Not Recovered/Not Resolved]
  - Knee arthroplasty [Unknown]
  - Femur fracture [Not Recovered/Not Resolved]
  - Wrist fracture [Recovered/Resolved]
  - Tooth extraction [Unknown]
  - Fracture malunion [Not Recovered/Not Resolved]
  - Arthralgia [Not Recovered/Not Resolved]
  - Dysuria [Unknown]
  - Lumbar vertebral fracture [Unknown]
  - Hepatic cyst [Unknown]
  - Upper limb fracture [Unknown]
  - Femoral neck fracture [Unknown]
  - Fracture pain [Recovering/Resolving]
  - Urinary tract infection [Unknown]
  - Wrist fracture [Unknown]
  - C-reactive protein increased [Unknown]
  - Gastric ulcer [Unknown]
  - Device loosening [Unknown]
  - Fall [Unknown]
  - Vitamin D deficiency [Unknown]
  - Multiple fractures [Not Recovered/Not Resolved]
  - Pathological fracture [Unknown]
  - Ilium fracture [Not Recovered/Not Resolved]
  - Stress urinary incontinence [Unknown]
  - Anaemia postoperative [Unknown]
  - Fall [Unknown]
  - Fracture nonunion [Recovered/Resolved]
  - Haemoglobin decreased [Recovering/Resolving]
  - Postoperative heterotopic calcification [Unknown]
  - Femur fracture [Not Recovered/Not Resolved]
  - Rheumatoid factor positive [Unknown]
  - Meniscus removal [Unknown]
  - Iron deficiency anaemia [Unknown]
  - Bone pain [Unknown]
  - Spinal osteoarthritis [Unknown]
  - Hip arthroplasty [Unknown]
  - Impaired healing [Not Recovered/Not Resolved]

NARRATIVE: CASE EVENT DATE: 200003
